FAERS Safety Report 14732825 (Version 2)
Quarter: 2018Q2

REPORT INFORMATION
  Report Type: Spontaneous
  Country: US (occurrence: US)
  Receive Date: 20180409
  Receipt Date: 20180504
  Transmission Date: 20180711
  Serious: No
  Sender: FDA-Public Use
  Company Number: US-PFIZER INC-2018139930

PATIENT
  Age: 58 Year
  Sex: Female

DRUGS (2)
  1. GABAPENTIN. [Suspect]
     Active Substance: GABAPENTIN
     Indication: PAIN
     Dosage: 300 MG EVERY BEDTIME FOR 1 WEEK THEN 300 MG TWICE DAILY
     Route: 048
     Dates: start: 2011, end: 2012
  2. GABAPENTIN. [Suspect]
     Active Substance: GABAPENTIN
     Dosage: 300 MG EVERY MORNING, 300 MG EVERY AFTERNOON AND 600 MG EVERY BEDTIME
     Route: 048
     Dates: start: 2012, end: 2013

REACTIONS (8)
  - Mood swings [Recovered/Resolved]
  - Product use in unapproved indication [Unknown]
  - Conversion disorder [Unknown]
  - Drug hypersensitivity [Unknown]
  - Amnesia [Recovered/Resolved]
  - Depression [Recovered/Resolved]
  - Anxiety [Recovered/Resolved]
  - Tearfulness [Recovered/Resolved]
